FAERS Safety Report 10353861 (Version 1)
Quarter: 2014Q3

REPORT INFORMATION
  Report Type: Spontaneous
  Country: US (occurrence: None)
  Receive Date: 20140729
  Receipt Date: 20140729
  Transmission Date: 20150326
  Serious: No
  Sender: FDA-Public Use
  Company Number: None

PATIENT
  Age: 71 Year
  Sex: Female

DRUGS (1)
  1. FORTEO [Suspect]
     Active Substance: TERIPARATIDE
     Dosage: 20MCG QD SQ
     Route: 058
     Dates: start: 20140406, end: 20140727

REACTIONS (1)
  - Swelling face [None]

NARRATIVE: CASE EVENT DATE: 20140506
